FAERS Safety Report 8684613 (Version 2)
Quarter: 2013Q3

REPORT INFORMATION
  Report Type: Report from Study
  Country: DE (occurrence: DE)
  Receive Date: 20120726
  Receipt Date: 20130813
  Transmission Date: 20140515
  Serious: Yes (Death)
  Sender: FDA-Public Use
  Company Number: DE-ROCHE-1064862

PATIENT
  Age: 85 Year
  Sex: Female
  Weight: 54.5 kg

DRUGS (11)
  1. METHOXY POLYETHYLENE GLYCOL-EPOETIN BETA [Suspect]
     Indication: NEPHROGENIC ANAEMIA
     Dosage: LAST DOSE PRIOR TO SAE: 05/MAR/2012
     Route: 058
     Dates: start: 20111214
  2. CARVEDILOL [Concomitant]
     Route: 065
     Dates: start: 20100612
  3. RASILEZ [Concomitant]
     Route: 065
     Dates: start: 20100612
  4. PENTALONG [Concomitant]
     Route: 065
     Dates: start: 20100612
  5. EXFORGE [Concomitant]
     Dosage: DOSE AS REPORTED: 5/80 MG
     Route: 065
     Dates: start: 20100612
  6. PANTOZOL [Concomitant]
     Route: 065
     Dates: start: 20100612
  7. NEPHROTRANS [Concomitant]
     Route: 065
     Dates: start: 20100612
  8. NOVONORM [Concomitant]
     Route: 065
     Dates: start: 20100612
  9. TORASEMID [Concomitant]
     Route: 065
     Dates: start: 20110517
  10. ACTOS [Concomitant]
     Route: 065
     Dates: start: 20101115
  11. ARANESP [Concomitant]
     Route: 065

REACTIONS (3)
  - Pneumonia [Fatal]
  - Hypoglycaemia [Fatal]
  - Depressed level of consciousness [Fatal]
